FAERS Safety Report 20554198 (Version 8)
Quarter: 2022Q2

REPORT INFORMATION
  Report Type: Spontaneous
  Country: IT (occurrence: IT)
  Receive Date: 20220304
  Receipt Date: 20220608
  Transmission Date: 20220721
  Serious: Yes (Other)
  Sender: FDA-Public Use
  Company Number: IT-NOVARTISPH-NVSC2022IT050785

PATIENT
  Age: 74 Year
  Sex: Female

DRUGS (2)
  1. RASAGILINE [Suspect]
     Active Substance: RASAGILINE
     Indication: Parkinson^s disease
     Dosage: 1 MG, QD
     Route: 048
  2. ALPRAZOLAM [Concomitant]
     Active Substance: ALPRAZOLAM
     Indication: Anxiety
     Dosage: 2 MG, QD
     Route: 065

REACTIONS (3)
  - Withdrawal syndrome [Recovering/Resolving]
  - Hypertension [Unknown]
  - Dermatitis allergic [Unknown]
